FAERS Safety Report 7134341-4 (Version None)
Quarter: 2010Q4

REPORT INFORMATION
  Report Type: 
  Country: None (occurrence: None)
  Receive Date: 20101203
  Receipt Date: 20101126
  Transmission Date: 20110411
  Serious: Yes (Death)
  Sender: FDA-Public Use
  Company Number: FR-PFIZER INC-2010162742

PATIENT
  Age: 78 Year
  Sex: Female

DRUGS (10)
  1. ATARAX [Suspect]
     Dosage: 50 MG, SINGLE
     Route: 048
     Dates: start: 20101106, end: 20101106
  2. CONTRAMAL [Suspect]
     Indication: PAIN
     Dosage: 100 MG, 2X/DAY
     Route: 048
     Dates: start: 20101029, end: 20101106
  3. PREVISCAN [Concomitant]
     Dosage: UNK
     Dates: end: 20101106
  4. CORDARONE [Concomitant]
     Dosage: UNK
     Dates: end: 20101106
  5. LASILIX [Concomitant]
     Dosage: 40 MG, 2X/DAY
  6. TAHOR [Concomitant]
     Dosage: 40 MG, 1X/DAY
     Dates: end: 20101106
  7. AZANTAC [Concomitant]
     Dosage: 300 MG, 1X/DAY
     Dates: end: 20101106
  8. SYMBICORT [Concomitant]
     Dosage: UNK
     Dates: end: 20101106
  9. PLAVIX [Concomitant]
     Dosage: 75 MG, 1X/DAY
  10. COLCHICINE [Concomitant]
     Dosage: 0.5 IU, 2X/DAY

REACTIONS (1)
  - OFF LABEL USE [None]
